FAERS Safety Report 12727006 (Version 2)
Quarter: 2016Q3

REPORT INFORMATION
  Report Type: Report from Study
  Country: US (occurrence: US)
  Receive Date: 20160909
  Receipt Date: 20160926
  Transmission Date: 20161109
  Serious: Yes (Other)
  Sender: FDA-Public Use
  Company Number: US-BIOGEN-2016BI00288067

PATIENT
  Sex: Female
  Weight: 163.44 kg

DRUGS (1)
  1. TECFIDERA [Suspect]
     Active Substance: DIMETHYL FUMARATE
     Indication: MULTIPLE SCLEROSIS
     Dosage: MAINTENANCE DOSE
     Route: 048
     Dates: start: 20150101

REACTIONS (7)
  - Drug dose omission [Recovered/Resolved]
  - Dyspnoea [Not Recovered/Not Resolved]
  - Pneumothorax [Not Recovered/Not Resolved]
  - Rib fracture [Not Recovered/Not Resolved]
  - Road traffic accident [Recovered/Resolved]
  - Peripheral swelling [Not Recovered/Not Resolved]
  - Memory impairment [Recovered/Resolved]
